FAERS Safety Report 9611923 (Version 1)
Quarter: 2013Q4

REPORT INFORMATION
  Report Type: Report from Study
  Country: US (occurrence: US)
  Receive Date: 20131010
  Receipt Date: 20131010
  Transmission Date: 20140711
  Serious: Yes (Hospitalization)
  Sender: FDA-Public Use
  Company Number: US-ASTELLAS-2013US010494

PATIENT
  Sex: Male

DRUGS (1)
  1. ERLOTINIB TABLET [Suspect]
     Indication: NON-SMALL CELL LUNG CANCER
     Dosage: 75 MG, UID/QD
     Route: 048
     Dates: start: 20130809

REACTIONS (2)
  - Incorrect dose administered [Unknown]
  - Perforated ulcer [Recovering/Resolving]
